FAERS Safety Report 22379409 (Version 1)
Quarter: 2023Q2

REPORT INFORMATION
  Report Type: Other
  Country: US (occurrence: US)
  Receive Date: 20230529
  Receipt Date: 20230529
  Transmission Date: 20230722
  Serious: Yes (Hospitalization)
  Sender: FDA-Public Use
  Company Number: US-Bion-011606

PATIENT
  Age: 16 Year
  Sex: Female

DRUGS (2)
  1. IBUPROFEN [Suspect]
     Active Substance: IBUPROFEN
     Indication: Product used for unknown indication
  2. NAPROXEN SODIUM [Suspect]
     Active Substance: NAPROXEN SODIUM
     Indication: Product used for unknown indication

REACTIONS (7)
  - Agitation [Unknown]
  - Disorientation [Unknown]
  - Hypotension [Unknown]
  - Lactic acidosis [Unknown]
  - Lethargy [Unknown]
  - Intentional product misuse [Unknown]
  - Overdose [Not Recovered/Not Resolved]
